FAERS Safety Report 9778026 (Version 1)
Quarter: 2013Q4

REPORT INFORMATION
  Report Type: Spontaneous
  Country: US (occurrence: US)
  Receive Date: 20131223
  Receipt Date: 20131223
  Transmission Date: 20140711
  Serious: No
  Sender: FDA-Public Use
  Company Number: US-009507513-1312USA008491

PATIENT
  Age: 24 Year
  Sex: Male

DRUGS (2)
  1. SAPHRIS [Suspect]
     Dosage: 10 MG, UNK
     Route: 048
     Dates: start: 20131216
  2. SAPHRIS [Suspect]
     Dosage: 5 MG, BID

REACTIONS (3)
  - Hypotension [Unknown]
  - Dizziness [Unknown]
  - Somnolence [Unknown]
